FAERS Safety Report 13703028 (Version 3)
Quarter: 2020Q3

REPORT INFORMATION
  Report Type: Report from Study
  Country: TW (occurrence: TW)
  Receive Date: 20170629
  Receipt Date: 20180101
  Transmission Date: 20201104
  Serious: Yes (Death, Hospitalization)
  Sender: FDA-Public Use
  Company Number: TW-ASTRAZENECA-2017SE35857

PATIENT
  Age: 19012 Day
  Sex: Male

DRUGS (28)
  1. SENNOSIDES. [Concomitant]
     Active Substance: SENNOSIDES
     Indication: CONSTIPATION
     Route: 048
     Dates: start: 20170324, end: 20170517
  2. ACETAMINOPHEN. [Concomitant]
     Active Substance: ACETAMINOPHEN
     Indication: PAIN MANAGEMENT
     Route: 048
     Dates: start: 20170407, end: 20170407
  3. PREDNISOLONE. [Concomitant]
     Active Substance: PREDNISOLONE
     Indication: ASTHENIA
     Route: 048
     Dates: start: 20170413, end: 20170415
  4. SODIUM CHLORIDE. [Concomitant]
     Active Substance: SODIUM CHLORIDE
     Indication: ACUTE KIDNEY INJURY
     Dosage: 250.0ML ONCE/SINGLE ADMINISTRATION
     Route: 042
     Dates: start: 20170419, end: 20170419
  5. TREMELIMUMAB. [Suspect]
     Active Substance: TREMELIMUMAB
     Indication: SQUAMOUS CELL CARCINOMA OF HEAD AND NECK
     Route: 042
     Dates: start: 20170417, end: 20170417
  6. METHYLPREDNISOLONE. [Concomitant]
     Active Substance: METHYLPREDNISOLONE
     Indication: ASTHENIA
     Route: 042
     Dates: start: 20170412, end: 20170413
  7. BISACODYL. [Concomitant]
     Active Substance: BISACODYL
     Indication: CONSTIPATION
     Route: 048
     Dates: start: 20170415, end: 20170415
  8. MEDI4736 [Suspect]
     Active Substance: DURVALUMAB
     Indication: SQUAMOUS CELL CARCINOMA OF HEAD AND NECK
     Route: 042
     Dates: start: 20170317, end: 20170317
  9. ACETAMINOPHEN. [Concomitant]
     Active Substance: ACETAMINOPHEN
     Indication: PAIN MANAGEMENT
     Route: 048
     Dates: start: 20170228, end: 20170303
  10. TAZOCIN [Concomitant]
     Active Substance: PIPERACILLIN SODIUM\TAZOBACTAM SODIUM
     Indication: PYREXIA
     Route: 042
     Dates: start: 20170417, end: 20170421
  11. COMBIVENT [Concomitant]
     Active Substance: ALBUTEROL SULFATE\IPRATROPIUM BROMIDE
     Indication: DYSPNOEA
     Dosage: 2.5ML ONCE/SINGLE ADMINISTRATION
     Route: 055
     Dates: start: 20170419, end: 20170419
  12. DILTIAZEM. [Concomitant]
     Active Substance: DILTIAZEM
     Indication: CHEST DISCOMFORT
     Dosage: 30 MG
     Route: 048
     Dates: start: 20170419, end: 20170419
  13. ULTRACET [Concomitant]
     Active Substance: ACETAMINOPHEN\TRAMADOL HYDROCHLORIDE
     Indication: BACK PAIN
     Route: 048
     Dates: start: 20170324, end: 20170517
  14. TAITA NO.5 [Concomitant]
     Indication: ELECTROLYTE IMBALANCE
     Route: 042
     Dates: start: 20170406, end: 20170419
  15. MEDI4736 [Suspect]
     Active Substance: DURVALUMAB
     Indication: SQUAMOUS CELL CARCINOMA OF HEAD AND NECK
     Route: 042
     Dates: start: 20170417, end: 20170417
  16. FEBUXOSTAT. [Concomitant]
     Active Substance: FEBUXOSTAT
     Indication: HYPERURICAEMIA
     Route: 048
     Dates: start: 20170407, end: 20170413
  17. ZOPICLONE [Concomitant]
     Active Substance: ZOPICLONE
     Indication: BACK PAIN
     Route: 048
     Dates: start: 20170410, end: 20170517
  18. BISACODYL. [Concomitant]
     Active Substance: BISACODYL
     Indication: CONSTIPATION
     Dosage: 20.0MG ONCE/SINGLE ADMINISTRATION
     Route: 054
     Dates: start: 20170417, end: 20170417
  19. MEGESTROL ACETATE. [Concomitant]
     Active Substance: MEGESTROL ACETATE
     Indication: APPETITE DISORDER
     Route: 048
     Dates: start: 20170418, end: 20170517
  20. TREMELIMUMAB. [Suspect]
     Active Substance: TREMELIMUMAB
     Indication: SQUAMOUS CELL CARCINOMA OF HEAD AND NECK
     Route: 042
     Dates: start: 20170317, end: 20170317
  21. DICLOFENAC [Concomitant]
     Active Substance: DICLOFENAC
     Indication: INFLAMMATION
     Route: 003
     Dates: start: 20170417, end: 20170507
  22. IPRATROPIUM [Concomitant]
     Active Substance: IPRATROPIUM
     Indication: DYSPNOEA
     Route: 055
     Dates: start: 20170419, end: 20170421
  23. ACETAMINOPHEN. [Concomitant]
     Active Substance: ACETAMINOPHEN
     Indication: PAIN MANAGEMENT
     Route: 048
     Dates: start: 20170316, end: 20170317
  24. ACETAMINOPHEN. [Concomitant]
     Active Substance: ACETAMINOPHEN
     Indication: PAIN MANAGEMENT
     Route: 048
     Dates: start: 20170517, end: 20170517
  25. UNASYN [Concomitant]
     Active Substance: AMPICILLIN SODIUM\SULBACTAM SODIUM
     Indication: PYREXIA
     Route: 042
     Dates: start: 20170410, end: 20170416
  26. MORPHINE SULFATE. [Concomitant]
     Active Substance: MORPHINE SULFATE
     Indication: BACK PAIN
     Route: 048
     Dates: start: 20170412, end: 20170516
  27. CHLORZOXAZONE. [Concomitant]
     Active Substance: CHLORZOXAZONE
     Indication: TUMOUR PAIN
     Route: 048
     Dates: start: 20170414, end: 20170414
  28. LACTULOSE. [Concomitant]
     Active Substance: LACTULOSE
     Indication: CONSTIPATION
     Dosage: 20.0ML ONCE/SINGLE ADMINISTRATION
     Route: 048
     Dates: start: 20170416, end: 20170416

REACTIONS (1)
  - Interstitial lung disease [Fatal]

NARRATIVE: CASE EVENT DATE: 20170420
